FAERS Safety Report 21891096 (Version 1)
Quarter: 2023Q1

REPORT INFORMATION
  Report Type: Spontaneous
  Country: FR (occurrence: FR)
  Receive Date: 20230120
  Receipt Date: 20230120
  Transmission Date: 20230417
  Serious: Yes (Other)
  Sender: FDA-Public Use
  Company Number: FR-PFIZER INC-202200773947

PATIENT
  Age: 89 Year
  Sex: Female

DRUGS (1)
  1. PAXLOVID [Suspect]
     Active Substance: NIRMATRELVIR\RITONAVIR
     Indication: COVID-19 treatment
     Dosage: [PF-07321332 300 MG]/[RITONAVIR 100 MG]; 2X/DAY
     Route: 048
     Dates: start: 20220520, end: 20220524

REACTIONS (12)
  - Hepatic fibrosis [Unknown]
  - Hepatic cirrhosis [Unknown]
  - Gamma-glutamyltransferase increased [Unknown]
  - Abdominal pain upper [Unknown]
  - Diarrhoea [Unknown]
  - Vertigo [Unknown]
  - Functional gastrointestinal disorder [Unknown]
  - Decreased appetite [Unknown]
  - Weight decreased [Unknown]
  - Nocturia [Unknown]
  - Chromaturia [Unknown]
  - Hepatic pain [Unknown]

NARRATIVE: CASE EVENT DATE: 20220522
